FAERS Safety Report 6983876-3 (Version None)
Quarter: 2010Q3

REPORT INFORMATION
  Report Type: 
  Country: None (occurrence: None)
  Receive Date: 20100914
  Receipt Date: 20090323
  Transmission Date: 20110219
  Serious: Yes (Hospitalization)
  Sender: FDA-Public Use
  Company Number: US-WYE-H08674209

PATIENT
  Age: 78 Year
  Sex: Female
  Weight: 61.29 kg

DRUGS (1)
  1. ADVIL LIQUI-GELS [Suspect]
     Indication: ANALGESIC THERAPY
     Dosage: 2 TABLETS DAILY AT BEDTIME
     Route: 048
     Dates: start: 20080901, end: 20090319

REACTIONS (2)
  - NAUSEA [None]
  - VOMITING [None]
